FAERS Safety Report 4354914-1 (Version None)
Quarter: 2004Q2

REPORT INFORMATION
  Report Type: 
  Country: None (occurrence: None)
  Receive Date: 20040505
  Receipt Date: 20040503
  Transmission Date: 20050107
  Serious: Yes (Other)
  Sender: FDA-Public Use
  Company Number: C2004-051-355

PATIENT
  Age: 31 Year
  Sex: Female
  Weight: 89 kg

DRUGS (2)
  1. CEFOXITIN [Suspect]
     Indication: PREOPERATIVE CARE
     Dosage: 2G 1X IVPB
     Route: 041
     Dates: start: 20040503
  2. LACTATE RINGER SOLUTION [Concomitant]

REACTIONS (2)
  - INJECTION SITE BURNING [None]
  - VOMITING [None]
